FAERS Safety Report 18997177 (Version 1)
Quarter: 2021Q1

REPORT INFORMATION
  Report Type: Report from Study
  Country: US (occurrence: US)
  Receive Date: 20210311
  Receipt Date: 20210311
  Transmission Date: 20210420
  Serious: Yes (Other)
  Sender: FDA-Public Use
  Company Number: US-BRISTOL-MYERS SQUIBB COMPANY-BMS-2021-021739

PATIENT
  Sex: Male
  Weight: 79.37 kg

DRUGS (2)
  1. APIXABAN [Suspect]
     Active Substance: APIXABAN
     Indication: PULMONARY EMBOLISM
     Dosage: UNK UNK, BID
     Route: 048
     Dates: start: 202101
  2. TESTOSTERONE. [Concomitant]
     Active Substance: TESTOSTERONE
     Indication: PRODUCT USED FOR UNKNOWN INDICATION
     Route: 065

REACTIONS (8)
  - Thrombosis [Unknown]
  - Muscle spasms [Unknown]
  - Pain in extremity [Unknown]
  - Hypokinesia [Unknown]
  - Fall [Unknown]
  - Internal haemorrhage [Unknown]
  - Peripheral swelling [Unknown]
  - Gait disturbance [Unknown]
